FAERS Safety Report 7681383-6 (Version None)
Quarter: 2011Q3

REPORT INFORMATION
  Report Type: 
  Country: None (occurrence: None)
  Receive Date: 20110812
  Receipt Date: 20110803
  Transmission Date: 20111222
  Serious: Yes (Other)
  Sender: FDA-Public Use
  Company Number: GB-JNJFOC-20100707306

PATIENT
  Sex: Female
  Weight: 69 kg

DRUGS (3)
  1. REMICADE [Suspect]
     Indication: RHEUMATOID ARTHRITIS
     Route: 042
     Dates: start: 20051024, end: 20051205
  2. ADALIMUMAB [Concomitant]
  3. METHOTREXATE [Concomitant]
     Dates: start: 20041119

REACTIONS (1)
  - RECTAL CANCER [None]
